FAERS Safety Report 5424974-5 (Version None)
Quarter: 2007Q3

REPORT INFORMATION
  Report Type: 
  Country: None (occurrence: None)
  Receive Date: 20070824
  Receipt Date: 20070813
  Transmission Date: 20080115
  Serious: Yes (Hospitalization)
  Sender: FDA-Public Use
  Company Number: B0483661A

PATIENT
  Age: 61 Year
  Sex: Male

DRUGS (6)
  1. ALKERAN [Suspect]
     Indication: TRANSPLANT
     Dosage: 200MG PER DAY
     Route: 042
     Dates: start: 20070511, end: 20070511
  2. AMIKLIN [Suspect]
     Indication: FEBRILE BONE MARROW APLASIA
     Dosage: 500MG PER DAY
     Route: 042
     Dates: start: 20070516, end: 20070517
  3. LASIX [Suspect]
     Dosage: 40MG PER DAY
     Route: 042
     Dates: start: 20070518, end: 20070518
  4. CIPROFLOXACIN HCL [Suspect]
     Indication: FEBRILE BONE MARROW APLASIA
     Dosage: 200MG TWICE PER DAY
     Route: 065
     Dates: start: 20070516, end: 20070524
  5. ALLOPURINOL [Concomitant]
     Dosage: 100MG PER DAY
     Route: 048
  6. TAZOCILLINE [Concomitant]
     Indication: FEBRILE BONE MARROW APLASIA
     Dosage: 4G FOUR TIMES PER DAY
     Route: 042
     Dates: start: 20070516, end: 20070524

REACTIONS (11)
  - ANURIA [None]
  - BLOOD CREATININE INCREASED [None]
  - CONFUSIONAL STATE [None]
  - DISORIENTATION [None]
  - DRUG TOXICITY [None]
  - FEBRILE BONE MARROW APLASIA [None]
  - HAEMODIALYSIS [None]
  - OEDEMA PERIPHERAL [None]
  - OLIGURIA [None]
  - RENAL FAILURE ACUTE [None]
  - RENAL TUBULAR NECROSIS [None]
